FAERS Safety Report 13794990 (Version 1)
Quarter: 2017Q3

REPORT INFORMATION
  Report Type: Spontaneous
  Country: GB (occurrence: GB)
  Receive Date: 20170726
  Receipt Date: 20170726
  Transmission Date: 20171127
  Serious: Yes (Hospitalization)
  Sender: FDA-Public Use
  Company Number: GB-TEVA-788653ACC

PATIENT
  Age: 64 Year
  Sex: Female
  Weight: 70 kg

DRUGS (23)
  1. SODIUM VALPROATE [Suspect]
     Active Substance: VALPROATE SODIUM
  2. ASPIRIN. [Concomitant]
     Active Substance: ASPIRIN
  3. CODEINE HYDROCHLORIDE [Concomitant]
     Active Substance: CODEINE HYDROCHLORIDE
  4. HYOSCINE BUTYLBROMIDE [Concomitant]
     Active Substance: BUTYLSCOPOLAMINE
  5. RANOLAZINE. [Concomitant]
     Active Substance: RANOLAZINE
  6. BISOPROLOL FUMARATE. [Concomitant]
     Active Substance: BISOPROLOL FUMARATE
  7. DEXCEL-PHARMA ISOSORBIDE MONONITRATE [Concomitant]
  8. FUROSEMIDE. [Concomitant]
     Active Substance: FUROSEMIDE
  9. RAMIPRIL. [Concomitant]
     Active Substance: RAMIPRIL
  10. LOPERAMIDE [Concomitant]
     Active Substance: LOPERAMIDE
  11. LINACLOTIDE [Concomitant]
     Active Substance: LINACLOTIDE
  12. MEROPENEM. [Suspect]
     Active Substance: MEROPENEM
     Indication: SEPSIS
     Route: 042
     Dates: start: 20170622, end: 20170628
  13. AMITRIPTYLINE [Concomitant]
     Active Substance: AMITRIPTYLINE
  14. AMLODIPINE [Concomitant]
     Active Substance: AMLODIPINE BESYLATE
  15. DULOXETINE. [Concomitant]
     Active Substance: DULOXETINE
  16. MORPHINE [Concomitant]
     Active Substance: MORPHINE
  17. NICORANDIL [Concomitant]
     Active Substance: NICORANDIL
  18. OMEPRAZOLE. [Concomitant]
     Active Substance: OMEPRAZOLE
  19. PREDNISOLONE. [Concomitant]
     Active Substance: PREDNISOLONE
  20. FORTISIP [Concomitant]
     Active Substance: CARBOHYDRATES\FATTY ACIDS\MINERALS\PROTEIN\VITAMINS
  21. CALCICHEW D3 [Concomitant]
     Active Substance: CALCIUM\CHOLECALCIFEROL
  22. CHLORPHENAMINE [Concomitant]
     Active Substance: CHLORPHENIRAMINE MALEATE
  23. PREGABALIN. [Concomitant]
     Active Substance: PREGABALIN

REACTIONS (2)
  - Epilepsy [Recovered/Resolved]
  - Drug dose omission [Unknown]

NARRATIVE: CASE EVENT DATE: 20170622
